FAERS Safety Report 8352143-8 (Version None)
Quarter: 2012Q2

REPORT INFORMATION
  Report Type: 
  Country: None (occurrence: None)
  Receive Date: 20120511
  Receipt Date: 20120502
  Transmission Date: 20120825
  Serious: Yes (Other)
  Sender: FDA-Public Use
  Company Number: CO-JNJFOC-20120504324

PATIENT
  Age: 30 Year
  Sex: Female

DRUGS (3)
  1. MESALAMINE [Concomitant]
     Route: 048
  2. INFLIXIMAB, RECOMBINANT [Suspect]
     Indication: COLITIS ULCERATIVE
     Route: 042
     Dates: start: 20100205
  3. AZATHIOPRINE [Concomitant]
     Route: 048

REACTIONS (2)
  - POSTOPERATIVE WOUND INFECTION [None]
  - MAMMOPLASTY [None]
